FAERS Safety Report 18048439 (Version 1)
Quarter: 2020Q3

REPORT INFORMATION
  Report Type: Spontaneous
  Country: US (occurrence: US)
  Receive Date: 20200720
  Receipt Date: 20200720
  Transmission Date: 20201103
  Serious: Yes (Hospitalization)
  Sender: FDA-Public Use
  Company Number: None

PATIENT
  Age: 57 Year
  Sex: Male

DRUGS (2)
  1. ABIRATERON ACETATE [Suspect]
     Active Substance: ABIRATERONE ACETATE
     Indication: PRODUCT USED FOR UNKNOWN INDICATION
     Route: 048
     Dates: start: 20200522
  2. SIMPONI [Concomitant]
     Active Substance: GOLIMUMAB

REACTIONS (2)
  - Infection [None]
  - Adverse drug reaction [None]

NARRATIVE: CASE EVENT DATE: 20200707
